FAERS Safety Report 7010848-5 (Version None)
Quarter: 2010Q3

REPORT INFORMATION
  Report Type: 
  Country: None (occurrence: None)
  Receive Date: 20100923
  Receipt Date: 20100916
  Transmission Date: 20110219
  Serious: Yes (Hospitalization)
  Sender: FDA-Public Use
  Company Number: DE-ABBOTT-10P-062-0672206-00

PATIENT
  Sex: Female

DRUGS (1)
  1. ENANTONE GYN [Suspect]
     Indication: ENDOMETRIOSIS
     Route: 050
     Dates: start: 20100401, end: 20100527

REACTIONS (3)
  - DYSTONIA [None]
  - MENOPAUSAL SYMPTOMS [None]
  - OVARIAN CYST [None]
